FAERS Safety Report 7740059-7 (Version None)
Quarter: 2011Q3

REPORT INFORMATION
  Report Type: 
  Country: None (occurrence: None)
  Receive Date: 20110909
  Receipt Date: 20110905
  Transmission Date: 20111222
  Serious: Yes (Hospitalization, Other)
  Sender: FDA-Public Use
  Company Number: BR-ROCHE-656357

PATIENT
  Sex: Female
  Weight: 59 kg

DRUGS (4)
  1. ALPRAZOLAM [Interacting]
     Route: 065
     Dates: start: 20070101
  2. CLONAZEPAM [Interacting]
     Dosage: FREQUENCY: DAILY. DOSAGE WAS REDUCED AFTER STROKE
     Route: 048
     Dates: start: 20110101
  3. CLONAZEPAM [Suspect]
     Indication: PANIC DISORDER
     Dosage: DOSE: HALF TAB/DAY
     Route: 048
     Dates: start: 20010101, end: 20110801
  4. PROPOLIS EXTRACT [Interacting]
     Route: 065
     Dates: start: 20050101, end: 20090901

REACTIONS (14)
  - ISCHAEMIC STROKE [None]
  - DRUG INTERACTION [None]
  - DRUG INEFFECTIVE [None]
  - TREMOR [None]
  - DYSKINESIA [None]
  - ANXIETY [None]
  - HALLUCINATION [None]
  - SOMNOLENCE [None]
  - EYE MOVEMENT DISORDER [None]
  - MOOD ALTERED [None]
  - COMA [None]
  - CEREBROVASCULAR ACCIDENT [None]
  - IRRITABILITY [None]
  - EPILEPSY [None]
